FAERS Safety Report 5115264-9 (Version None)
Quarter: 2006Q3

REPORT INFORMATION
  Report Type: 
  Country: None (occurrence: None)
  Receive Date: 20060926
  Receipt Date: 20060821
  Transmission Date: 20061208
  Serious: Yes (Other)
  Sender: FDA-Public Use
  Company Number: US-GLAXOSMITHKLINE-A0617489A

PATIENT
  Sex: Male
  Weight: 88.5 kg

DRUGS (6)
  1. AVANDIA [Suspect]
     Dosage: 2MG TWICE PER DAY
     Route: 048
     Dates: start: 20040601
  2. METFORMIN [Concomitant]
  3. CRESTOR [Concomitant]
  4. QUINAPRIL [Concomitant]
  5. GLYBURIDE [Concomitant]
  6. ALBUTEROL [Concomitant]

REACTIONS (7)
  - DIZZINESS [None]
  - FEELING ABNORMAL [None]
  - HEADACHE [None]
  - HYPERHIDROSIS [None]
  - HYPOGLYCAEMIA [None]
  - IMPAIRED WORK ABILITY [None]
  - VERTIGO [None]
